FAERS Safety Report 16679575 (Version 11)
Quarter: 2020Q1

REPORT INFORMATION
  Report Type: Spontaneous
  Country: US (occurrence: US)
  Receive Date: 20190807
  Receipt Date: 20200331
  Transmission Date: 20200409
  Serious: Yes (Other)
  Sender: FDA-Public Use
  Company Number: US-PFIZER INC-2019339884

PATIENT
  Age: 87 Year
  Sex: Female

DRUGS (1)
  1. XELJANZ XR [Suspect]
     Active Substance: TOFACITINIB CITRATE
     Dosage: 11 MG, UNK

REACTIONS (10)
  - Pain [Unknown]
  - Fall [Unknown]
  - Feeling abnormal [Unknown]
  - Choking [Unknown]
  - Periarthritis [Unknown]
  - Spinal fracture [Unknown]
  - Spinal stenosis [Unknown]
  - Weight decreased [Unknown]
  - Loss of personal independence in daily activities [Unknown]
  - Tooth loss [Unknown]

NARRATIVE: CASE EVENT DATE: 20190619
